FAERS Safety Report 16567707 (Version 4)
Quarter: 2020Q1

REPORT INFORMATION
  Report Type: Spontaneous
  Country: US (occurrence: US)
  Receive Date: 20190712
  Receipt Date: 20200225
  Transmission Date: 20200409
  Serious: Yes (Hospitalization)
  Sender: FDA-Public Use
  Company Number: US-ASTRAZENECA-2019SE98735

PATIENT
  Age: 27865 Day
  Sex: Female
  Weight: 68 kg

DRUGS (1)
  1. BEVESPI AEROSPHERE [Suspect]
     Active Substance: FORMOTEROL FUMARATE\GLYCOPYRROLATE
     Indication: CHRONIC OBSTRUCTIVE PULMONARY DISEASE
     Dosage: 9.8MCG/4.8MCG, 2 PUFFS TWICE A DAY, TWICE DAILY
     Route: 055
     Dates: start: 2016

REACTIONS (11)
  - Pneumonia [Not Recovered/Not Resolved]
  - Osteoporosis [Unknown]
  - Eye disorder [Unknown]
  - Intentional device misuse [Not Recovered/Not Resolved]
  - Device issue [Unknown]
  - Confusional state [Not Recovered/Not Resolved]
  - Cerebral disorder [Unknown]
  - Pneumothorax [Recovered/Resolved]
  - Malaise [Not Recovered/Not Resolved]
  - Asthma [Not Recovered/Not Resolved]
  - Device failure [Not Recovered/Not Resolved]

NARRATIVE: CASE EVENT DATE: 20171225
